FAERS Safety Report 6744026-1 (Version None)
Quarter: 2010Q2

REPORT INFORMATION
  Report Type: 
  Country: None (occurrence: None)
  Receive Date: 20100527
  Receipt Date: 20100521
  Transmission Date: 20101027
  Serious: Yes (Hospitalization)
  Sender: FDA-Public Use
  Company Number: A0787854A

PATIENT
  Age: 53 Year
  Sex: Female

DRUGS (7)
  1. AVANDIA [Suspect]
     Indication: DIABETES MELLITUS
     Dosage: 4MG PER DAY
     Route: 048
     Dates: start: 20070101, end: 20070501
  2. METFORMIN HYDROCHLORIDE [Concomitant]
  3. GLIPIZIDE [Concomitant]
  4. HCTZ [Concomitant]
  5. LISINOPRIL [Concomitant]
  6. SINGULAIR [Concomitant]
  7. PREMARIN [Concomitant]

REACTIONS (1)
  - MYOCARDIAL INFARCTION [None]
